FAERS Safety Report 25078575 (Version 1)
Quarter: 2025Q1

REPORT INFORMATION
  Report Type: Spontaneous
  Country: US (occurrence: None)
  Receive Date: 20250314
  Receipt Date: 20250314
  Transmission Date: 20250409
  Serious: Yes (Hospitalization)
  Sender: FDA-CTU
  Company Number: None

PATIENT
  Sex: Female

DRUGS (8)
  1. POMALYST [Suspect]
     Active Substance: POMALIDOMIDE
     Indication: Breast cancer female
     Route: 048
     Dates: start: 20240326
  2. AZELASTINE [Concomitant]
     Active Substance: AZELASTINE
  3. CINNAMON [Concomitant]
     Active Substance: CINNAMON
  4. COMBIGAN [Concomitant]
     Active Substance: BRIMONIDINE TARTRATE\TIMOLOL MALEATE
  5. LORATADINE [Concomitant]
     Active Substance: LORATADINE
  6. OMEPRAZOLE [Concomitant]
     Active Substance: OMEPRAZOLE
  7. XGEVA [Concomitant]
     Active Substance: DENOSUMAB
  8. ZOLEDRONIC [Concomitant]
     Active Substance: ZOLEDRONIC ACID

REACTIONS (1)
  - Therapy interrupted [None]
